FAERS Safety Report 15369363 (Version 2)
Quarter: 2018Q3

REPORT INFORMATION
  Report Type: Spontaneous
  Country: US (occurrence: US)
  Receive Date: 20180911
  Receipt Date: 20180914
  Transmission Date: 20181010
  Serious: No
  Sender: FDA-Public Use
  Company Number: US-TEVA-2018-US-952846

PATIENT
  Age: 57 Year
  Sex: Female

DRUGS (1)
  1. LAMOTRIGINE. [Suspect]
     Active Substance: LAMOTRIGINE
     Dosage: 225 MILLIGRAM DAILY; ONE 150 MG TABLET IN THE MORNING AND ONE AND A HALF 150 MG TABLETS AT NIGHT
     Route: 065

REACTIONS (2)
  - Expired product administered [Unknown]
  - Eye movement disorder [Unknown]
